FAERS Safety Report 5977775-3 (Version None)
Quarter: 2008Q4

REPORT INFORMATION
  Report Type: 
  Country: None (occurrence: None)
  Receive Date: 20081203
  Receipt Date: 20081126
  Transmission Date: 20090506
  Serious: Yes (Hospitalization, Other)
  Sender: FDA-Public Use
  Company Number: US-ELI_LILLY_AND_COMPANY-US_0503114293

PATIENT
  Sex: Female
  Weight: 45.455 kg

DRUGS (2)
  1. STRATTERA [Suspect]
     Indication: ATTENTION DEFICIT/HYPERACTIVITY DISORDER
     Dosage: 90 MG, DAILY (1/D)
     Dates: start: 20040101, end: 20050307
  2. ZOLOFT [Concomitant]
     Dosage: 50 MG, DAILY (1/D)
     Dates: start: 20040101, end: 20050308

REACTIONS (4)
  - APLASTIC ANAEMIA [None]
  - HEPATIC FAILURE [None]
  - OVERDOSE [None]
  - PROTHROMBIN LEVEL INCREASED [None]
